FAERS Safety Report 9123936 (Version 1)
Quarter: 2013Q1

REPORT INFORMATION
  Report Type: Spontaneous
  Country: FR (occurrence: FR)
  Receive Date: 20130115
  Receipt Date: 20130115
  Transmission Date: 20140127
  Serious: Yes (Other)
  Sender: FDA-Public Use
  Company Number: FR-PFIZER INC-2013012560

PATIENT
  Age: 69 Year
  Sex: Female

DRUGS (4)
  1. LYRICA [Suspect]
     Indication: NERVE INJURY
     Dosage: 100 MG, 2X/DAY
     Dates: start: 2011
  2. LYRICA [Suspect]
     Dosage: UNK
  3. CRESTOR [Concomitant]
  4. IXPRIM [Concomitant]

REACTIONS (4)
  - Balance disorder [Unknown]
  - Fall [Unknown]
  - Vestibular disorder [Unknown]
  - Visual impairment [Unknown]
